FAERS Safety Report 8442879-2 (Version None)
Quarter: 2012Q2

REPORT INFORMATION
  Report Type: 
  Country: None (occurrence: None)
  Receive Date: 20120615
  Receipt Date: 20120608
  Transmission Date: 20120825
  Serious: Yes (Other)
  Sender: FDA-Public Use
  Company Number: IT-SANOFI-AVENTIS-2012SA042226

PATIENT
  Age: 40 Year
  Sex: Male

DRUGS (2)
  1. OPTISET [Suspect]
     Indication: DEVICE THERAPY
     Dates: start: 20120423, end: 20120423
  2. APIDRA OPTISET [Suspect]
     Route: 058
     Dates: start: 20120423, end: 20120423

REACTIONS (1)
  - SUICIDE ATTEMPT [None]
